FAERS Safety Report 8971396 (Version 1)
Quarter: 2012Q4

REPORT INFORMATION
  Report Type: 
  Country: US (occurrence: US)
  Receive Date: 20121217
  Receipt Date: 20121217
  Transmission Date: 20130627
  Serious: Yes (Other)
  Sender: FDA-Public Use
  Company Number: US-PFIZER INC-2012313922

PATIENT
  Age: 79 Year
  Sex: Female
  Weight: 71.66 kg

DRUGS (2)
  1. REVATIO [Suspect]
     Indication: PULMONARY ARTERIAL HYPERTENSION
     Dosage: 20 mg, 3x/day
     Route: 048
     Dates: start: 201209
  2. BUDESONIDE/SALBUTAMOL SULFATE [Concomitant]
     Indication: ASTHMA
     Dosage: UNK

REACTIONS (1)
  - Dyspnoea [Not Recovered/Not Resolved]
